FAERS Safety Report 7402482-X (Version None)
Quarter: 2011Q2

REPORT INFORMATION
  Report Type: 
  Country: None (occurrence: None)
  Receive Date: 20110408
  Receipt Date: 20110328
  Transmission Date: 20111010
  Serious: Yes (Hospitalization)
  Sender: FDA-Public Use
  Company Number: PHHO2011JP05715

PATIENT
  Sex: Female
  Weight: 66 kg

DRUGS (13)
  1. DAIO-KANZO-TO [Concomitant]
     Indication: CONSTIPATION
  2. MYCOPHENOLATE MOFETIL [Suspect]
     Indication: RENAL TRANSPLANT
     Dosage: 2000 MG, DAILY
     Route: 048
     Dates: start: 20090207
  3. SENNA LEAF [Concomitant]
     Indication: CONSTIPATION
  4. DIOVAN [Concomitant]
     Indication: HYPERTENSION
  5. ISODINE [Concomitant]
     Indication: PROPHYLAXIS
  6. ALOSENN [Concomitant]
     Indication: CONSTIPATION
  7. NEORAL [Suspect]
     Indication: RENAL TRANSPLANT
     Dosage: 150 MG, DAILY
     Route: 048
     Dates: start: 20101217
  8. SANDIMMUNE [Concomitant]
     Indication: RENAL TRANSPLANT
  9. PREDNISOLONE [Concomitant]
     Indication: RENAL TRANSPLANT
  10. SIMULECT [Concomitant]
     Dosage: 20 MG, (DAY 4)
     Route: 042
     Dates: start: 20090210, end: 20090210
  11. SIMULECT [Concomitant]
     Indication: RENAL TRANSPLANT
     Dosage: 20 MG, (DAY 0)
     Route: 042
     Dates: start: 20090206, end: 20090206
  12. MAGNESIUM OXIDE [Concomitant]
     Indication: CONSTIPATION
  13. PANTOSIN [Concomitant]
     Indication: CONSTIPATION

REACTIONS (1)
  - CHOLELITHIASIS [None]
